FAERS Safety Report 6020823-5 (Version None)
Quarter: 2008Q4

REPORT INFORMATION
  Report Type: 
  Country: None (occurrence: None)
  Receive Date: 20081229
  Receipt Date: 20081223
  Transmission Date: 20090506
  Serious: Yes (Other)
  Sender: FDA-Public Use
  Company Number: US-JNJFOC-20081206463

PATIENT
  Age: 51 Year
  Sex: Male

DRUGS (1)
  1. ELMIRON [Suspect]
     Indication: BLADDER DISCOMFORT
     Route: 048

REACTIONS (1)
  - BLOOD URINE PRESENT [None]
